FAERS Safety Report 23611754 (Version 1)
Quarter: 2024Q1

REPORT INFORMATION
  Report Type: Spontaneous
  Country: DE (occurrence: DE)
  Receive Date: 20240308
  Receipt Date: 20240308
  Transmission Date: 20240410
  Serious: Yes (Death, Life-Threatening, Hospitalization, Other)
  Sender: FDA-Public Use
  Company Number: None

PATIENT
  Age: 73 Year
  Sex: Male

DRUGS (14)
  1. ALFACALCIDOL [Concomitant]
     Active Substance: ALFACALCIDOL
     Indication: Product used for unknown indication
     Dosage: DAILY DOSE: 0.25 ?G MICROGRAM(S) EVERY DAY
     Route: 065
  2. BENEFIX [Concomitant]
     Active Substance: COAGULATION FACTOR IX RECOMBINANT HUMAN\ISOPROPYL ALCOHOL
     Indication: Product used for unknown indication
     Dosage: 6000 IE
     Route: 065
  3. CYKLOKAPRON [Concomitant]
     Active Substance: TRANEXAMIC ACID
     Indication: Product used for unknown indication
     Dosage: DAILY DOSE: 3000 MG MILLIGRAM(S) EVERY DAY
     Route: 065
  4. CYKLOKAPRON [Concomitant]
     Active Substance: TRANEXAMIC ACID
     Dosage: DAILY DOSE: 3000 MG MILLIGRAM(S) EVERY DAY
     Route: 065
  5. HALDOL [Concomitant]
     Active Substance: HALOPERIDOL
     Indication: Product used for unknown indication
     Dosage: DROPLETS/2
     Route: 065
  6. INSULIN NOS [Concomitant]
     Active Substance: INSULIN NOS
     Indication: Type 2 diabetes mellitus
     Dosage: DOSED BASED ON GLUCOSE LEVELS
     Route: 065
  7. MELATONIN [Concomitant]
     Active Substance: MELATONIN
     Indication: Product used for unknown indication
     Dosage: DAILY DOSE: 3 MG MILLIGRAM(S) EVERY DAY
     Route: 065
  8. THIAMINE [Concomitant]
     Active Substance: THIAMINE
     Indication: Product used for unknown indication
     Dosage: DAILY DOSE: 100 MG MILLIGRAM(S) EVERY DAY
     Route: 065
  9. TOLBUTAMIDE [Concomitant]
     Active Substance: TOLBUTAMIDE
     Indication: Product used for unknown indication
     Dosage: DAILY DOSE: 1000 MG MILLIGRAM(S) EVERY DAY
     Route: 065
  10. FLUCLOXACILLIN [Interacting]
     Active Substance: FLUCLOXACILLIN
     Indication: Staphylococcal bacteraemia
     Dosage: DAILY DOSE: 6 G GRAM(S) EVERY DAY
     Route: 042
  11. FLUCLOXACILLIN [Interacting]
     Active Substance: FLUCLOXACILLIN
     Indication: Soft tissue infection
     Dosage: DAILY DOSE: 6 G GRAM(S) EVERY DAY/6 G, QD
     Route: 042
  12. FLUCLOXACILLIN SODIUM [Interacting]
     Active Substance: FLUCLOXACILLIN SODIUM
     Indication: Antibiotic therapy
     Dosage: 6.000G QD
     Route: 042
  13. ACETAMINOPHEN [Interacting]
     Active Substance: ACETAMINOPHEN
     Indication: Analgesic therapy
     Dosage: DAILY DOSE: 3 G GRAM(S) EVERY DAY/1 G, TID
     Route: 042
  14. ACETAMINOPHEN [Interacting]
     Active Substance: ACETAMINOPHEN
     Indication: Analgesic therapy
     Dosage: DAILY DOSE: 3 G GRAM(S) EVERY DAY/1 G, TID
     Route: 054

REACTIONS (11)
  - Cardiopulmonary failure [Fatal]
  - Metabolic acidosis [Not Recovered/Not Resolved]
  - Blood albumin decreased [Recovered/Resolved]
  - Blood bicarbonate decreased [Recovered/Resolved]
  - Tachypnoea [Recovered/Resolved]
  - PCO2 decreased [Recovered/Resolved]
  - Pyroglutamate increased [Recovered/Resolved]
  - Metabolic acidosis [Recovered/Resolved]
  - Blood chloride increased [Recovered/Resolved]
  - Blood sodium increased [Recovered/Resolved]
  - Confusional state [Recovered/Resolved]
